FAERS Safety Report 5122318-X (Version None)
Quarter: 2006Q4

REPORT INFORMATION
  Report Type: 
  Country: None (occurrence: None)
  Receive Date: 20061003
  Receipt Date: 20060918
  Transmission Date: 20070319
  Serious: Yes (Hospitalization)
  Sender: FDA-Public Use
  Company Number: 147658USA

PATIENT
  Age: 78 Year
  Sex: Female
  Weight: 93.8946 kg

DRUGS (4)
  1. BECLOMETHASONE DIPROPIONATE [Suspect]
     Indication: EMPHYSEMA
     Dosage: 2 IN 1 D, RESPIRATORY (INHALATION)
     Route: 055
     Dates: start: 20060401, end: 20060801
  2. LEVOTHYROXINE SODIUM [Concomitant]
  3. FUROSEMIDE [Concomitant]
  4. POTASSIUM CHLORIDE [Concomitant]

REACTIONS (3)
  - CHEST PAIN [None]
  - CONDUCTION DISORDER [None]
  - GASTROOESOPHAGEAL REFLUX DISEASE [None]
